FAERS Safety Report 4609966-8 (Version None)
Quarter: 2005Q1

REPORT INFORMATION
  Report Type: 
  Country: None (occurrence: None)
  Receive Date: 20050314
  Receipt Date: 20050127
  Transmission Date: 20050727
  Serious: Yes (Life-Threatening)
  Sender: FDA-Public Use
  Company Number: 10035

PATIENT
  Age: 17 Year
  Sex: Female

DRUGS (3)
  1. METHOTREXATE [Suspect]
     Indication: BONE SARCOMA
     Dosage: 14 G , IV
     Route: 042
     Dates: start: 20041129, end: 20041129
  2. DOXORUBICIN HYDROCHLORIDE [Concomitant]
  3. CISPLATIN [Concomitant]

REACTIONS (3)
  - BULBAR PALSY [None]
  - LEUKOENCEPHALOPATHY [None]
  - QUADRIPLEGIA [None]
